FAERS Safety Report 5530703-7 (Version None)
Quarter: 2007Q4

REPORT INFORMATION
  Report Type: 
  Country: None (occurrence: None)
  Receive Date: 20071128
  Receipt Date: 20071128
  Transmission Date: 20080405
  Serious: Yes (Death)
  Sender: FDA-Public Use
  Company Number: None

PATIENT
  Age: 76 Year
  Sex: Male
  Weight: 83 kg

DRUGS (12)
  1. DIGOXIN [Suspect]
     Indication: SUPRAVENTRICULAR TACHYCARDIA
     Dosage: 0.5 MG IV X 1; 0.25 MG IV Q12? X 2
     Route: 042
     Dates: start: 20071014, end: 20071015
  2. HEPARIN [Concomitant]
  3. INSULIN [Concomitant]
  4. ISDN [Concomitant]
  5. LEVO [Concomitant]
  6. LEVOTHYROXINE SODIUM [Concomitant]
  7. METHYLPREDNISOLONE [Concomitant]
  8. METRONIDAZOLE [Concomitant]
  9. MORPHINE [Concomitant]
  10. AMIODARONE HCL [Concomitant]
  11. NOREPI [Concomitant]
  12. IPRATROPIUM BROMIDE [Concomitant]

REACTIONS (9)
  - ATRIAL FLUTTER [None]
  - CARDIO-RESPIRATORY ARREST [None]
  - CARDIOACTIVE DRUG LEVEL INCREASED [None]
  - ELECTROMECHANICAL DISSOCIATION [None]
  - HYPOTENSION [None]
  - NO THERAPEUTIC RESPONSE [None]
  - RESPIRATORY DISTRESS [None]
  - SUPRAVENTRICULAR TACHYCARDIA [None]
  - VENTRICULAR TACHYCARDIA [None]
